FAERS Safety Report 15223565 (Version 1)
Quarter: 2018Q3

REPORT INFORMATION
  Report Type: Spontaneous
  Country: US (occurrence: US)
  Receive Date: 20180705
  Receipt Date: 20180705
  Transmission Date: 20181010
  Serious: Yes (Other)
  Sender: FDA-Public Use
  Company Number: None

PATIENT
  Age: 46 Year
  Sex: Female
  Weight: 97.07 kg

DRUGS (12)
  1. CALCIUM LACTATE [Concomitant]
     Active Substance: CALCIUM LACTATE
  2. MINOCYCLINE [Concomitant]
     Active Substance: MINOCYCLINE\MINOCYCLINE HYDROCHLORIDE
  3. METFORMIN [Concomitant]
     Active Substance: METFORMIN HYDROCHLORIDE
  4. TRAMADOL. [Concomitant]
     Active Substance: TRAMADOL
  5. ADVIL MIGRAINE [Concomitant]
     Active Substance: IBUPROFEN
  6. DIOVAN [Concomitant]
     Active Substance: VALSARTAN
  7. CLOBETASOL [Concomitant]
     Active Substance: CLOBETASOL
  8. LOSARTAN. [Concomitant]
     Active Substance: LOSARTAN
  9. ESCITALOPRAM [Concomitant]
     Active Substance: ESCITALOPRAM OXALATE
  10. GAMMAPLEX [Suspect]
     Active Substance: HUMAN IMMUNOGLOBULIN G
     Indication: PEMPHIGUS
     Route: 042
     Dates: start: 20180625
  11. MULTIVITAMIN [Concomitant]
     Active Substance: VITAMINS
  12. GARCINIA CAMBOGIA?CHROMIUM [Concomitant]

REACTIONS (3)
  - Heart rate increased [None]
  - Infusion related reaction [None]
  - Chills [None]

NARRATIVE: CASE EVENT DATE: 20180625
